FAERS Safety Report 6431825-9 (Version None)
Quarter: 2009Q4

REPORT INFORMATION
  Report Type: 
  Country: None (occurrence: None)
  Receive Date: 20091104
  Receipt Date: 20091021
  Transmission Date: 20100525
  Serious: Yes (Hospitalization)
  Sender: FDA-Public Use
  Company Number: 1000009766

PATIENT
  Age: 75 Year
  Sex: Male

DRUGS (5)
  1. CITALOPRAM HYDROBROMIDE [Suspect]
     Dosage: 20 MG (20 MG, 1 IN 1 D), ORAL
     Route: 048
  2. FELDEN (TABLETS) [Suspect]
     Indication: PAIN
     Dosage: ORAL
     Route: 048
     Dates: end: 20081212
  3. ZESTORETIC [Concomitant]
  4. ZALDIAR (TABLETS) [Concomitant]
  5. EXELON [Concomitant]

REACTIONS (13)
  - ARTHRALGIA [None]
  - CONDITION AGGRAVATED [None]
  - DEHYDRATION [None]
  - DUODENAL ULCER [None]
  - FALL [None]
  - GASTRITIS EROSIVE [None]
  - GASTROINTESTINAL HAEMORRHAGE [None]
  - HAEMORRHAGIC ANAEMIA [None]
  - HYPOTENSION [None]
  - HYPOTONIA [None]
  - INTERNATIONAL NORMALISED RATIO INCREASED [None]
  - MUSCULOSKELETAL CHEST PAIN [None]
  - RENAL FAILURE [None]
